FAERS Safety Report 5524236-1 (Version None)
Quarter: 2007Q4

REPORT INFORMATION
  Report Type: 
  Country: None (occurrence: None)
  Receive Date: 20071121
  Receipt Date: 20071113
  Transmission Date: 20080405
  Serious: Yes (Hospitalization)
  Sender: FDA-Public Use
  Company Number: GB-PFIZER INC-2007084544

PATIENT
  Sex: Female
  Weight: 90 kg

DRUGS (2)
  1. CHAMPIX [Suspect]
     Indication: SMOKING CESSATION THERAPY
     Route: 048
     Dates: start: 20070822, end: 20070912
  2. ORLISTAT [Concomitant]
     Indication: WEIGHT CONTROL
     Dosage: TEXT:120 G THREE TIMES A DAY
     Route: 048

REACTIONS (6)
  - ASTHENIA [None]
  - CHEST PAIN [None]
  - DEPRESSED MOOD [None]
  - DEPRESSION [None]
  - FEELING ABNORMAL [None]
  - MALAISE [None]
